FAERS Safety Report 9899296 (Version 1)
Quarter: 2014Q1

REPORT INFORMATION
  Report Type: Spontaneous
  Country: BR (occurrence: BR)
  Receive Date: 20140214
  Receipt Date: 20140214
  Transmission Date: 20141002
  Serious: Yes (Other)
  Sender: FDA-Public Use
  Company Number: BR-JNJFOC-20140201563

PATIENT
  Age: 90 Year
  Sex: Female
  Weight: 47 kg

DRUGS (5)
  1. HALDOL [Suspect]
     Indication: CONFUSIONAL STATE
     Route: 065
  2. HALDOL [Suspect]
     Indication: CONFUSIONAL STATE
     Dosage: PHYSICIAN ORIENTED THE PATIENT TO INGEST 5 DROPS WHICH IS EQUIVALENT TO 0.5 MG.
     Route: 065
  3. HALDOL [Suspect]
     Indication: CONFUSIONAL STATE
     Route: 065
     Dates: start: 201301
  4. HALDOL [Suspect]
     Indication: CONFUSIONAL STATE
     Route: 065
  5. REMINYL ER [Suspect]
     Indication: DEMENTIA ALZHEIMER^S TYPE
     Route: 065
     Dates: start: 201301

REACTIONS (3)
  - Drug prescribing error [Unknown]
  - Hallucination [Not Recovered/Not Resolved]
  - Aggression [Not Recovered/Not Resolved]
